FAERS Safety Report 16851164 (Version 1)
Quarter: 2019Q3

REPORT INFORMATION
  Report Type: Report from Study
  Country: CN (occurrence: CN)
  Receive Date: 20190925
  Receipt Date: 20190925
  Transmission Date: 20191005
  Serious: Yes (Other)
  Sender: FDA-Public Use
  Company Number: CN-ELI_LILLY_AND_COMPANY-CN201909010094

PATIENT
  Age: 61 Year
  Sex: Female

DRUGS (8)
  1. DEXAMETHASONE. [Concomitant]
     Active Substance: DEXAMETHASONE
     Indication: METASTASES TO MENINGES
     Dosage: 10 MG, 2/W
     Route: 037
  2. OSIMERTINIB. [Concomitant]
     Active Substance: OSIMERTINIB
     Indication: PRODUCT USED FOR UNKNOWN INDICATION
     Dosage: 80 MG, DAILY
     Route: 065
  3. PEMETREXED. [Suspect]
     Active Substance: PEMETREXED
     Indication: METASTASES TO MENINGES
     Dosage: 10 MG, 2/W
     Route: 037
  4. FOLIC ACID. [Concomitant]
     Active Substance: FOLIC ACID
     Indication: VITAMIN SUPPLEMENTATION
     Dosage: 400 UG, DAILY
     Route: 065
  5. CYANOCOBALAMIN. [Concomitant]
     Active Substance: CYANOCOBALAMIN
     Indication: VITAMIN SUPPLEMENTATION
     Dosage: 1000 UG, SINGLE
     Route: 030
  6. PEMETREXED. [Suspect]
     Active Substance: PEMETREXED
     Dosage: 10 MG, WEEKLY (1/W)
     Route: 037
  7. DEXAMETHASONE. [Concomitant]
     Active Substance: DEXAMETHASONE
     Dosage: 10 MG, WEEKLY (1/W)
     Route: 037
  8. GEFITINIB. [Concomitant]
     Active Substance: GEFITINIB
     Indication: PRODUCT USED FOR UNKNOWN INDICATION
     Dosage: 250 MG, DAILY
     Route: 065

REACTIONS (4)
  - Radiculopathy [Unknown]
  - Fatigue [Unknown]
  - Weight decreased [Unknown]
  - Bone marrow failure [Unknown]
